FAERS Safety Report 8170132-3 (Version None)
Quarter: 2012Q1

REPORT INFORMATION
  Report Type: 
  Country: None (occurrence: None)
  Receive Date: 20120228
  Receipt Date: 20120220
  Transmission Date: 20120608
  Serious: Yes (Other)
  Sender: FDA-Public Use
  Company Number: PHHY2009CA49055

PATIENT
  Sex: Female

DRUGS (4)
  1. ZOLEDRONOC ACID [Suspect]
     Indication: OSTEOPOROSIS
     Dosage: 5 MG
     Route: 042
     Dates: start: 20091103
  2. ZOLEDRONOC ACID [Suspect]
     Dosage: 5 MG
     Route: 042
     Dates: start: 20110131
  3. ACETAMINOPHEN [Concomitant]
     Dosage: UNK UKN, UNK
  4. ASPIRIN [Concomitant]
     Dosage: UNK UKN, UNK

REACTIONS (11)
  - UPPER LIMB FRACTURE [None]
  - LISTERIOSIS [None]
  - DYSPNOEA [None]
  - RHEUMATOID ARTHRITIS [None]
  - DYSPHONIA [None]
  - COUGH [None]
  - FALL [None]
  - MOBILITY DECREASED [None]
  - MALAISE [None]
  - DIARRHOEA [None]
  - PYREXIA [None]
